FAERS Safety Report 9265439 (Version 3)
Quarter: 2013Q2

REPORT INFORMATION
  Report Type: Spontaneous
  Country: BR (occurrence: BR)
  Receive Date: 20130501
  Receipt Date: 20130626
  Transmission Date: 20140414
  Serious: Yes (Other)
  Sender: FDA-Public Use
  Company Number: BR-ASTRAZENECA-2013SE28450

PATIENT
  Age: 499 Month
  Sex: Female
  Weight: 98 kg

DRUGS (2)
  1. VANNAIR [Suspect]
     Indication: ASTHMA
     Dosage: 160/4.5 UG TWO TIMES DAILY
     Route: 055
     Dates: start: 201209, end: 20130419
  2. BUDECORT AQUA [Suspect]
     Route: 045
     Dates: start: 20130319

REACTIONS (4)
  - Dyspnoea [Recovered/Resolved]
  - Cough [Recovered/Resolved]
  - Gastritis [Recovering/Resolving]
  - Drug dose omission [Recovered/Resolved]
